FAERS Safety Report 4448943-7 (Version None)
Quarter: 2004Q3

REPORT INFORMATION
  Report Type: 
  Country: None (occurrence: None)
  Receive Date: 20040909
  Receipt Date: 20040820
  Transmission Date: 20050211
  Serious: Yes (Congenital Anomaly)
  Sender: FDA-Public Use
  Company Number: US_0408104904

PATIENT
  Age: 1 Day
  Sex: Male

DRUGS (2)
  1. ZYPREXA [Suspect]
     Dates: start: 19970901, end: 19971218
  2. PRENATAL VITAMINS [Concomitant]

REACTIONS (3)
  - ACROCHORDON [None]
  - DRUG EXPOSURE DURING PREGNANCY [None]
  - PREMATURE BABY [None]
